FAERS Safety Report 8333500-2 (Version None)
Quarter: 2012Q1

REPORT INFORMATION
  Report Type: 
  Country: None (occurrence: None)
  Receive Date: 20120329
  Receipt Date: 20090714
  Transmission Date: 20120608
  Serious: Yes (Hospitalization)
  Sender: FDA-Public Use
  Company Number: PHEH2009US04847

PATIENT
  Age: 78 Year
  Sex: Male
  Weight: 62.6 kg

DRUGS (16)
  1. PREDNISONE TAB [Concomitant]
  2. ASPIRIN [Concomitant]
  3. ZINC (ZINC) [Concomitant]
  4. IRON (IRON) [Concomitant]
  5. VITAMIN B6 [Concomitant]
  6. MULTIVITAMINS (ASCORBIC ACID, ERGOCALCIFEROL, FOLIC ACID, NICOTINAMIDE [Concomitant]
  7. EXELON [Suspect]
     Indication: DEMENTIA ALZHEIMER'S TYPE
     Dosage: 1.5 UNK, BID, ORAL
     Route: 048
     Dates: start: 20090414, end: 20090416
  8. SYNTHROID [Concomitant]
  9. LIPITOR [Concomitant]
  10. THEOPHYLLINE [Concomitant]
  11. ASCORBIC ACID [Concomitant]
  12. ADVAIR HFA [Concomitant]
  13. DUO MEDIHALER (ISOPRENALINE HYDROCHLORIDE, PHENYLEPHRINE BITARTRATE) [Concomitant]
  14. MUCINEX [Concomitant]
  15. CALCIUM CARBONATE [Concomitant]
  16. UROXATRAL [Concomitant]

REACTIONS (3)
  - VOMITING [None]
  - NAUSEA [None]
  - DEHYDRATION [None]
